FAERS Safety Report 16994689 (Version 1)
Quarter: 2019Q4

REPORT INFORMATION
  Report Type: Other
  Country: PL (occurrence: PL)
  Receive Date: 20191105
  Receipt Date: 20191105
  Transmission Date: 20200122
  Serious: Yes (Other)
  Sender: FDA-Public Use
  Company Number: PL-TOPROL ACQUISITION LLC-2019-TOP-001336

PATIENT
  Age: 63 Year
  Sex: Male

DRUGS (8)
  1. METOPROLOL SUCCINATE. [Suspect]
     Active Substance: METOPROLOL SUCCINATE
     Indication: HYPERTENSION
     Dosage: UNK
     Route: 048
  2. PAZOPANIB [Suspect]
     Active Substance: PAZOPANIB
     Dosage: UNK, (THIRD, FOURTH AND FIFTH COURSE)
  3. PAZOPANIB [Suspect]
     Active Substance: PAZOPANIB
     Indication: RENAL CANCER
     Dosage: 800 MG, QD (SECOND COURSE)
  4. PAZOPANIB [Suspect]
     Active Substance: PAZOPANIB
     Dosage: UNK, (SIXTH, SEVENTH, EIGHT AND 9TH COURSE)
  5. GLUCOPHAGE [Suspect]
     Active Substance: METFORMIN HYDROCHLORIDE
     Indication: TYPE 2 DIABETES MELLITUS
     Dosage: 500 MG, QD
  6. PAZOPANIB [Suspect]
     Active Substance: PAZOPANIB
     Dosage: 800 MG, QD
     Dates: start: 20180112
  7. PAZOPANIB [Suspect]
     Active Substance: PAZOPANIB
     Dosage: UNK, (11TH COURSE)
  8. TENSART HCT [Suspect]
     Active Substance: HYDROCHLOROTHIAZIDE\VALSARTAN
     Indication: HYPERTENSION
     Dosage: UNK

REACTIONS (7)
  - Blood creatinine increased [Recovered/Resolved]
  - Back pain [Recovering/Resolving]
  - Neoplasm progression [Unknown]
  - Purulent discharge [Recovered/Resolved with Sequelae]
  - Transaminases increased [Recovered/Resolved]
  - Otitis media [Unknown]
  - Scar [Unknown]
